FAERS Safety Report 7667250-2 (Version None)
Quarter: 2011Q3

REPORT INFORMATION
  Report Type: 
  Country: None (occurrence: None)
  Receive Date: 20110806
  Receipt Date: 20110406
  Transmission Date: 20111222
  Serious: No
  Sender: FDA-Public Use
  Company Number: US-ABBOTT-11P-163-0716765-00

PATIENT
  Sex: Female
  Weight: 63.56 kg

DRUGS (3)
  1. NIASPAN [Suspect]
     Indication: LOW DENSITY LIPOPROTEIN ABNORMAL
     Dosage: AT BEDTIME
     Dates: start: 20110315
  2. GABAPENPINE [Concomitant]
     Indication: PRODUCT USED FOR UNKNOWN INDICATION
  3. FAMOTIDINE [Concomitant]
     Indication: PRODUCT USED FOR UNKNOWN INDICATION

REACTIONS (2)
  - PARAESTHESIA [None]
  - FEELING HOT [None]
